FAERS Safety Report 25358869 (Version 1)
Quarter: 2025Q2

REPORT INFORMATION
  Report Type: Report from Study
  Country: US (occurrence: US)
  Receive Date: 20250526
  Receipt Date: 20250526
  Transmission Date: 20250717
  Serious: No
  Sender: ACADIA PHARMACEUTICALS
  Company Number: US-ACADIA PHARMACEUTICALS INC.-ACA-2025-PIM-006109

PATIENT
  Sex: Male

DRUGS (14)
  1. NUPLAZID [Suspect]
     Active Substance: PIMAVANSERIN TARTRATE
     Indication: Parkinson^s disease
     Dosage: 34 MILLIGRAM, TAKE ONE CAPSULE BY MOUTH ONCE DAILY
     Route: 048
     Dates: start: 20250305
  2. NITROFURANTOIN [Concomitant]
     Active Substance: NITROFURANTOIN
  3. RYTARY [Concomitant]
     Active Substance: CARBIDOPA\LEVODOPA
  4. CIPROFLOXACIN [Concomitant]
     Active Substance: CIPROFLOXACIN
  5. ZENPEP [Concomitant]
     Active Substance: PANCRELIPASE AMYLASE\PANCRELIPASE LIPASE\PANCRELIPASE PROTEASE
  6. COMBIVENT RESPIMAT [Concomitant]
     Active Substance: ALBUTEROL SULFATE\IPRATROPIUM BROMIDE
  7. DOXYCYCLINE [Concomitant]
     Active Substance: DOXYCYCLINE
  8. LORAZEPAM [Concomitant]
     Active Substance: LORAZEPAM
  9. QUETIAPINE [Concomitant]
     Active Substance: QUETIAPINE
  10. MIDODRINE [Concomitant]
     Active Substance: MIDODRINE
  11. ADULT MULTIVITAMIN [Concomitant]
  12. VITAMIN B-1 [THIAMINE HYDROCHLORIDE] [Concomitant]
  13. VITAMIN K2 + D3 [COLECALCIFEROL;MENAQUINONE] [Concomitant]
  14. PROBIOTICS [PROBIOTICS NOS] [Concomitant]

REACTIONS (4)
  - Insomnia [Not Recovered/Not Resolved]
  - Adverse drug reaction [Not Recovered/Not Resolved]
  - Aggression [Not Recovered/Not Resolved]
  - Product dose omission issue [Not Recovered/Not Resolved]
